FAERS Safety Report 21978404 (Version 1)
Quarter: 2023Q1

REPORT INFORMATION
  Report Type: Spontaneous
  Country: HR (occurrence: HR)
  Receive Date: 20230210
  Receipt Date: 20230210
  Transmission Date: 20230418
  Serious: Yes (Other)
  Sender: FDA-Public Use
  Company Number: HR-ABBVIE-4288862

PATIENT
  Age: 77 Year
  Sex: Female

DRUGS (4)
  1. OBINUTUZUMAB [Suspect]
     Active Substance: OBINUTUZUMAB
     Indication: Chronic lymphocytic leukaemia
     Dosage: 1ST LINE TH; 6TH CYCLE
     Route: 065
     Dates: start: 20221207, end: 20221207
  2. OBINUTUZUMAB [Suspect]
     Active Substance: OBINUTUZUMAB
     Route: 065
     Dates: start: 202207
  3. VENETOCLAX [Suspect]
     Active Substance: VENETOCLAX
     Indication: Chronic lymphocytic leukaemia
     Dosage: 400 MILLIGRAM
     Route: 065
     Dates: start: 202207, end: 20230104
  4. VENETOCLAX [Suspect]
     Active Substance: VENETOCLAX
     Dosage: 1ST LINE TH; 6TH CYCLE
     Route: 065
     Dates: start: 20221207, end: 20221207

REACTIONS (3)
  - Pseudocyst [Unknown]
  - Lipase increased [Recovered/Resolved]
  - Pancreatitis acute [Unknown]

NARRATIVE: CASE EVENT DATE: 20230104
